FAERS Safety Report 8136560-7 (Version None)
Quarter: 2012Q1

REPORT INFORMATION
  Report Type: 
  Country: None (occurrence: None)
  Receive Date: 20120214
  Receipt Date: 20120208
  Transmission Date: 20120608
  Serious: Yes (Hospitalization, Other)
  Sender: FDA-Public Use
  Company Number: PHHY2011US29830

PATIENT
  Sex: Female
  Weight: 96.599 kg

DRUGS (1)
  1. GILENYA [Suspect]
     Indication: MULTIPLE SCLEROSIS
     Dosage: 0.5 MG, DAILY
     Route: 048
     Dates: start: 20110303

REACTIONS (8)
  - HEPATIC ENZYME INCREASED [None]
  - ALOPECIA [None]
  - MULTIPLE SCLEROSIS RELAPSE [None]
  - PANCREATITIS [None]
  - IMPAIRED GASTRIC EMPTYING [None]
  - LYMPHOCYTE COUNT DECREASED [None]
  - CONSTIPATION [None]
  - CLOSTRIDIAL INFECTION [None]
